FAERS Safety Report 4929910-3 (Version None)
Quarter: 2006Q1

REPORT INFORMATION
  Report Type: 
  Country: None (occurrence: None)
  Receive Date: 20060127
  Receipt Date: 20051130
  Transmission Date: 20060701
  Serious: Yes (Other)
  Sender: FDA-Public Use
  Company Number: 2005144732

PATIENT
  Age: 82 Year
  Sex: Male

DRUGS (6)
  1. LYRICA [Suspect]
     Indication: DIABETIC NEUROPATHY
     Dosage: 150 MEQ (50 MG 3 IN 1 D, ORAL)
     Route: 048
     Dates: start: 20051017, end: 20051017
  2. VASOTEC [Concomitant]
  3. GLUCOPHAGE [Concomitant]
  4. ACTOS [Concomitant]
  5. CARDURA [Concomitant]
  6. HYDROCHLOROTHIAZIDE [Concomitant]

REACTIONS (3)
  - ABASIA [None]
  - DIZZINESS [None]
  - LIMB DISCOMFORT [None]
